FAERS Safety Report 20997556 (Version 4)
Quarter: 2023Q1

REPORT INFORMATION
  Report Type: Report from Study
  Country: US (occurrence: US)
  Receive Date: 20220623
  Receipt Date: 20230301
  Transmission Date: 20230417
  Serious: Yes (Hospitalization)
  Sender: FDA-Public Use
  Company Number: US-JNJFOC-20220637886

PATIENT
  Age: 22 Year
  Sex: Female
  Weight: 87.622 kg

DRUGS (1)
  1. INFLIXIMAB [Suspect]
     Active Substance: INFLIXIMAB
     Indication: Inflammatory bowel disease
     Route: 041
     Dates: start: 20111014

REACTIONS (1)
  - Stomal hernia [Not Recovered/Not Resolved]

NARRATIVE: CASE EVENT DATE: 20211001
